FAERS Safety Report 24455522 (Version 2)
Quarter: 2024Q4

REPORT INFORMATION
  Report Type: Report from Study
  Country: US (occurrence: US)
  Receive Date: 20241017
  Receipt Date: 20241018
  Transmission Date: 20250114
  Serious: No
  Sender: ROCHE
  Company Number: US-ROCHE-3483727

PATIENT
  Age: 58 Year
  Sex: Female

DRUGS (2)
  1. RITUXAN [Suspect]
     Active Substance: RITUXIMAB
     Indication: Product used for unknown indication
     Dosage: 10 MG/ML(10ML)
     Route: 041
  2. ACTEMRA [Suspect]
     Active Substance: TOCILIZUMAB
     Indication: Rheumatoid arthritis
     Dosage: 162MG/0.9ML
     Route: 058

REACTIONS (6)
  - Drug hypersensitivity [Unknown]
  - Arthritis [Unknown]
  - Ill-defined disorder [Unknown]
  - Dysgraphia [Unknown]
  - Ill-defined disorder [Unknown]
  - Ill-defined disorder [Unknown]
